FAERS Safety Report 7864861-6 (Version None)
Quarter: 2011Q4

REPORT INFORMATION
  Report Type: 
  Country: None (occurrence: None)
  Receive Date: 20111028
  Receipt Date: 20100907
  Transmission Date: 20120403
  Serious: No
  Sender: FDA-Public Use
  Company Number: US-GLAXOSMITHKLINE-A0879870A

PATIENT
  Age: 52 Year
  Sex: Male

DRUGS (2)
  1. ADVAIR DISKUS 100/50 [Suspect]
     Indication: ASTHMA
     Dosage: 2PUFF TWICE PER DAY
     Route: 055
     Dates: start: 20020601
  2. NO CONCURRENT MEDICATION [Concomitant]

REACTIONS (5)
  - ILL-DEFINED DISORDER [None]
  - TOOTH DISORDER [None]
  - TONGUE GEOGRAPHIC [None]
  - SPEECH DISORDER [None]
  - OROPHARYNGEAL DISCOMFORT [None]
